FAERS Safety Report 14149598 (Version 1)
Quarter: 2017Q4

REPORT INFORMATION
  Report Type: Spontaneous
  Country: TW (occurrence: TW)
  Receive Date: 20171101
  Receipt Date: 20171101
  Transmission Date: 20180321
  Serious: Yes (Other)
  Sender: FDA-Public Use
  Company Number: TW-JNJFOC-20171033199

PATIENT

DRUGS (3)
  1. RISPERIDONE. [Suspect]
     Active Substance: RISPERIDONE
     Indication: BIPOLAR DISORDER
     Route: 065
  2. HALOPERIDOL. [Suspect]
     Active Substance: HALOPERIDOL
     Indication: BIPOLAR DISORDER
     Route: 065
  3. PALIPERIDONE. [Suspect]
     Active Substance: PALIPERIDONE
     Indication: BIPOLAR DISORDER
     Route: 065

REACTIONS (2)
  - Haemorrhagic stroke [Unknown]
  - Ischaemic stroke [Unknown]
